FAERS Safety Report 7428226-3 (Version None)
Quarter: 2011Q2

REPORT INFORMATION
  Report Type: 
  Country: None (occurrence: None)
  Receive Date: 20110421
  Receipt Date: 20110412
  Transmission Date: 20111010
  Serious: No
  Sender: FDA-Public Use
  Company Number: US-BIOGENIDEC-2011BI014259

PATIENT
  Sex: Female

DRUGS (1)
  1. TYSABRI [Suspect]
     Indication: MULTIPLE SCLEROSIS
     Route: 042
     Dates: start: 20110223

REACTIONS (10)
  - EYE PAIN [None]
  - DIZZINESS [None]
  - CENTRAL NERVOUS SYSTEM LESION [None]
  - FATIGUE [None]
  - EYE DISORDER [None]
  - ASTHENIA [None]
  - NAUSEA [None]
  - URINE ODOUR ABNORMAL [None]
  - OCULAR HYPERAEMIA [None]
  - BURNING SENSATION [None]
